FAERS Safety Report 7330690-5 (Version None)
Quarter: 2011Q1

REPORT INFORMATION
  Report Type: 
  Country: None (occurrence: None)
  Receive Date: 20110304
  Receipt Date: 20100914
  Transmission Date: 20110831
  Serious: Yes (Hospitalization, Other)
  Sender: FDA-Public Use
  Company Number: US-BAYER-200935607NA

PATIENT
  Sex: Female
  Weight: 63.636 kg

DRUGS (11)
  1. IBUPROFEN [Concomitant]
     Dosage: 600 MG, UNK
     Dates: start: 20070105
  2. UNASYN [Concomitant]
     Dosage: UNK
     Dates: start: 20090209
  3. YAZ [Suspect]
     Indication: ORAL CONTRACEPTION
     Route: 048
     Dates: start: 20071003, end: 20081009
  4. IBUPROFEN [Concomitant]
     Dosage: 800 MG, UNK
     Dates: start: 20060120
  5. IBUPROFEN [Concomitant]
     Dosage: 800 MG, UNK
     Dates: start: 20071119
  6. FLAGYL [Concomitant]
     Dosage: UNK
     Dates: start: 20090209
  7. ZANTAC [Concomitant]
  8. YAZ [Suspect]
     Dosage: UNK
     Dates: start: 20080428
  9. YASMIN [Suspect]
     Indication: CONTRACEPTION
     Dosage: UNK
     Dates: start: 20040412
  10. VICODIN [Concomitant]
  11. COLACE [Concomitant]

REACTIONS (5)
  - CHOLELITHIASIS [None]
  - BILE DUCT STONE [None]
  - PANCREATITIS [None]
  - CHOLECYSTITIS CHRONIC [None]
  - CHOLECYSTITIS ACUTE [None]
